FAERS Safety Report 21846829 (Version 3)
Quarter: 2023Q4

REPORT INFORMATION
  Report Type: Report from Study
  Country: US (occurrence: US)
  Receive Date: 20230111
  Receipt Date: 20231102
  Transmission Date: 20240109
  Serious: Yes (Other)
  Sender: FDA-Public Use
  Company Number: US-ABBVIE-4263669

PATIENT
  Sex: Female

DRUGS (2)
  1. HUMIRA [Suspect]
     Active Substance: ADALIMUMAB
     Indication: Colitis ulcerative
     Route: 058
     Dates: start: 20221101
  2. HUMIRA [Suspect]
     Active Substance: ADALIMUMAB
     Dosage: LAST ADMIN DATE- 2022
     Route: 058
     Dates: start: 20220916

REACTIONS (5)
  - Oral surgery [Unknown]
  - Pneumonia [Unknown]
  - Skin ulcer [Unknown]
  - Bone pain [Unknown]
  - Pain of skin [Unknown]

NARRATIVE: CASE EVENT DATE: 20220101
